FAERS Safety Report 9848390 (Version 1)
Quarter: 2014Q1

REPORT INFORMATION
  Report Type: Spontaneous
  Country: US (occurrence: None)
  Receive Date: 20140124
  Receipt Date: 20140124
  Transmission Date: 20141002
  Serious: Yes (Other)
  Sender: FDA-Public Use
  Company Number: None

PATIENT
  Age: 73 Year
  Sex: Female
  Weight: 63.5 kg

DRUGS (1)
  1. DELZICOL [Suspect]
     Dosage: 2  1/2 WEEKS MID DECEMBER ?EVENT ABATED -N (ACHING JOINTS FEET + KNEES CONTINUE)

REACTIONS (7)
  - Arthralgia [None]
  - Pain in extremity [None]
  - Pain in extremity [None]
  - Joint stiffness [None]
  - Musculoskeletal stiffness [None]
  - Joint swelling [None]
  - Product formulation issue [None]
